FAERS Safety Report 22174742 (Version 1)
Quarter: 2023Q2

REPORT INFORMATION
  Report Type: Spontaneous
  Country: CO (occurrence: CO)
  Receive Date: 20230405
  Receipt Date: 20230405
  Transmission Date: 20230722
  Serious: Yes (Hospitalization, Other)
  Sender: FDA-Public Use
  Company Number: CO-UCBSA-2023017115

PATIENT
  Age: 51 Year
  Sex: Female

DRUGS (4)
  1. LEVETIRACETAM [Suspect]
     Active Substance: LEVETIRACETAM
     Indication: Product used for unknown indication
     Dosage: 500 MILLIGRAM, 2X/DAY (BID)
     Route: 065
  2. LEVETIRACETAM [Suspect]
     Active Substance: LEVETIRACETAM
     Dosage: 1000 MILLIGRAM, 2X/DAY (BID)
  3. BELIMUMAB [Suspect]
     Active Substance: BELIMUMAB
     Indication: Subacute cutaneous lupus erythematosus
     Dosage: 400 MILLIGRAM, MONTHLY (QM)
     Route: 065
     Dates: start: 20221202, end: 20230228
  4. BELIMUMAB [Suspect]
     Active Substance: BELIMUMAB
     Indication: Product use in unapproved indication

REACTIONS (2)
  - Seizure [Recovered/Resolved]
  - Subacute cutaneous lupus erythematosus [Unknown]

NARRATIVE: CASE EVENT DATE: 20230217
